FAERS Safety Report 5177384-2 (Version None)
Quarter: 2006Q4

REPORT INFORMATION
  Report Type: 
  Country: None (occurrence: None)
  Receive Date: 20061207
  Receipt Date: 20061128
  Transmission Date: 20070319
  Serious: Yes (Other)
  Sender: FDA-Public Use
  Company Number: 2006148040

PATIENT
  Age: 52 Year
  Sex: Female

DRUGS (3)
  1. ZITHROMAX [Suspect]
     Indication: PNEUMONIA
     Dosage: 2 IN 1 D, INTRAVENOUS
     Route: 042
     Dates: start: 20061121, end: 20061122
  2. PIPERACILLIN SODIUM AND TAZOBACTAM SODIUM [Concomitant]
  3. CIPROFLOXACIN [Concomitant]

REACTIONS (1)
  - HALLUCINATIONS, MIXED [None]
